FAERS Safety Report 8894126 (Version 2)
Quarter: 2012Q4

REPORT INFORMATION
  Report Type: 
  Country: US (occurrence: US)
  Receive Date: 20121108
  Receipt Date: 20121116
  Transmission Date: 20130627
  Serious: Yes (Other)
  Sender: FDA-Public Use
  Company Number: US-AMGEN-USASP2012070683

PATIENT
  Age: 57 Year
  Sex: Female

DRUGS (2)
  1. ENBREL [Suspect]
     Indication: RHEUMATOID ARTHRITIS
     Dosage: 50 mg, qwk
     Dates: start: 20080101
  2. METHOTREXATE [Concomitant]
     Dosage: 7.5 mg, qwk
     Route: 048

REACTIONS (5)
  - Cholelithiasis [Recovered/Resolved]
  - Haemangioma of liver [Not Recovered/Not Resolved]
  - Headache [Recovered/Resolved]
  - Paranasal sinus hypersecretion [Not Recovered/Not Resolved]
  - Pharyngitis streptococcal [Recovered/Resolved]
